FAERS Safety Report 6371697-4 (Version None)
Quarter: 2009Q3

REPORT INFORMATION
  Report Type: 
  Country: None (occurrence: None)
  Receive Date: 20090923
  Receipt Date: 20081210
  Transmission Date: 20100115
  Serious: Yes (Life-Threatening, Hospitalization, Other)
  Sender: FDA-Public Use
  Company Number: US-ASTRAZENECA-2008UW06629

PATIENT
  Age: 16 Year
  Sex: Male

DRUGS (4)
  1. SEROQUEL [Suspect]
     Indication: AFFECTIVE DISORDER
     Route: 048
     Dates: start: 20080101, end: 20080301
  2. ZYPREXA [Suspect]
     Route: 030
  3. DEPAKOTE [Concomitant]
  4. DEPAKOTE [Concomitant]

REACTIONS (1)
  - PANCREATITIS [None]
